FAERS Safety Report 4465184-8 (Version None)
Quarter: 2004Q3

REPORT INFORMATION
  Report Type: 
  Country: None (occurrence: None)
  Receive Date: 20040928
  Receipt Date: 20040928
  Transmission Date: 20050211
  Serious: Yes (Other)
  Sender: FDA-Public Use
  Company Number: None

PATIENT
  Age: 48 Year
  Sex: Female
  Weight: 83.4619 kg

DRUGS (1)
  1. INAPSINE [Suspect]
     Indication: NAUSEA
     Dosage: 2.5 MG IV X 1
     Route: 042
     Dates: start: 20040419

REACTIONS (1)
  - FEELING ABNORMAL [None]
